FAERS Safety Report 23029532 (Version 3)
Quarter: 2023Q4

REPORT INFORMATION
  Report Type: Report from Study
  Country: CH (occurrence: CH)
  Receive Date: 20231004
  Receipt Date: 20231030
  Transmission Date: 20240110
  Serious: Yes (Hospitalization, Other)
  Sender: FDA-Public Use
  Company Number: CH-GILEAD-2023-0638638

PATIENT
  Age: 62 Year
  Sex: Female
  Weight: 54 kg

DRUGS (54)
  1. BREXUCABTAGENE AUTOLEUCEL [Suspect]
     Active Substance: BREXUCABTAGENE AUTOLEUCEL
     Indication: Burkitt^s lymphoma
     Dosage: UNK
     Route: 042
     Dates: start: 20230724, end: 20230724
  2. CYCLOPHOSPHAMIDE [Suspect]
     Active Substance: CYCLOPHOSPHAMIDE
     Indication: Bone marrow conditioning regimen
     Dosage: ^500^
     Route: 042
     Dates: start: 20230720, end: 20230721
  3. FLUDARABINE [Suspect]
     Active Substance: FLUDARABINE PHOSPHATE
     Indication: Bone marrow conditioning regimen
     Dosage: ^30^
     Route: 042
     Dates: start: 20230719, end: 20230721
  4. CYCLOPHOSPHAMIDE\CYTARABINE\DEXAMETHASONE\DOXORUBICIN\METHOTREXATE\VIN [Suspect]
     Active Substance: CYCLOPHOSPHAMIDE\CYTARABINE\DEXAMETHASONE\DOXORUBICIN\METHOTREXATE\VINCRISTINE
     Indication: Product used for unknown indication
     Dosage: 596
     Route: 042
     Dates: start: 20230623, end: 20230623
  5. CYCLOPHOSPHAMIDE\CYTARABINE\DEXAMETHASONE\DOXORUBICIN\METHOTREXATE\VIN [Suspect]
     Active Substance: CYCLOPHOSPHAMIDE\CYTARABINE\DEXAMETHASONE\DOXORUBICIN\METHOTREXATE\VINCRISTINE
     Dosage: 2388
     Route: 042
     Dates: start: 20230624, end: 20230625
  6. CYCLOPHOSPHAMIDE\CYTARABINE\DEXAMETHASONE\DOXORUBICIN\METHOTREXATE\VIN [Suspect]
     Active Substance: CYCLOPHOSPHAMIDE\CYTARABINE\DEXAMETHASONE\DOXORUBICIN\METHOTREXATE\VINCRISTINE
     Dosage: 3180
     Route: 042
     Dates: start: 20230626, end: 20230627
  7. ACYCLOVIR [Concomitant]
     Active Substance: ACYCLOVIR
     Dosage: 400,MG,TWICE DAILY
     Route: 048
     Dates: start: 202302
  8. BACTRIM [Concomitant]
     Active Substance: SULFAMETHOXAZOLE\TRIMETHOPRIM
     Dosage: 800/160,MG,OTHER
     Route: 048
     Dates: start: 202302
  9. PREGABALIN [Concomitant]
     Active Substance: PREGABALIN
     Dosage: 75,MG,TWICE DAILY
     Route: 048
     Dates: start: 202302, end: 20230727
  10. PREGABALIN [Concomitant]
     Active Substance: PREGABALIN
     Dosage: 75,MG,TWICE DAILY
     Route: 048
     Dates: start: 20230628
  11. RABEPRAZOL SANDOZ [Concomitant]
     Dosage: 20,MG,DAILY
     Route: 048
     Dates: start: 202302
  12. RABEPRAZOL SANDOZ [Concomitant]
     Dosage: 20,MG,DAILY
     Route: 048
     Dates: start: 202302, end: 20230717
  13. AMIKACIN [Concomitant]
     Active Substance: AMIKACIN
     Dosage: 1000,MG,DAILY
     Route: 042
     Dates: start: 20230704, end: 20230707
  14. CEFTAZIDIME [Concomitant]
     Active Substance: CEFTAZIDIME
     Dosage: 2,G,THREE TIMES DAILY
     Route: 042
     Dates: start: 20230704, end: 20230707
  15. MEROPENEM [Concomitant]
     Active Substance: MEROPENEM
     Dosage: 2,G,THREE TIMES DAILY
     Route: 042
     Dates: start: 20230707, end: 20230717
  16. MEROPENEM [Concomitant]
     Active Substance: MEROPENEM
     Dosage: 2,G,OTHER
     Route: 042
     Dates: start: 20230726
  17. MEROPENEM [Concomitant]
     Active Substance: MEROPENEM
     Dosage: 1,G,OTHER
     Route: 042
     Dates: start: 20230726, end: 20230731
  18. MEROPENEM [Concomitant]
     Active Substance: MEROPENEM
     Dosage: 2,G,THREE TIMES DAILY
     Route: 042
     Dates: start: 20230918, end: 20230920
  19. DAFALGAN [Concomitant]
     Active Substance: ACETAMINOPHEN
     Dosage: 1,G,AS NECESSARY
     Route: 048
     Dates: start: 20230717
  20. DAFALGAN [Concomitant]
     Active Substance: ACETAMINOPHEN
     Dosage: 1,G,AS NECESSARY
     Route: 042
     Dates: start: 20230726
  21. VALVERDE [VALERIANA OFFICINALIS EXTRACT] [Concomitant]
     Dosage: 200,ML,AS NECESSARY
     Route: 048
     Dates: start: 20230721
  22. XYZAL [Concomitant]
     Active Substance: LEVOCETIRIZINE DIHYDROCHLORIDE
     Dosage: 5,MG,ONCE
     Route: 048
     Dates: start: 20230724, end: 20230724
  23. TOCILIZUMAB [Concomitant]
     Active Substance: TOCILIZUMAB
     Dosage: 450,MG,UNKNOWN
     Route: 042
     Dates: start: 20230727
  24. TOCILIZUMAB [Concomitant]
     Active Substance: TOCILIZUMAB
     Dosage: 450,MG,TWICE DAILY
     Route: 042
     Dates: start: 20230727, end: 20230728
  25. KINERET [Concomitant]
     Active Substance: ANAKINRA
     Dosage: 100,MG,FOUR TIMES DAILY
     Route: 058
     Dates: start: 20230731, end: 20230802
  26. KINERET [Concomitant]
     Active Substance: ANAKINRA
     Dosage: 100,MG,TWICE DAILY
     Route: 058
     Dates: start: 20230802, end: 20230803
  27. PANTOPRAZOLE SODIUM [Concomitant]
     Active Substance: PANTOPRAZOLE SODIUM
     Dosage: 20,MG,TWICE DAILY
     Route: 048
     Dates: start: 202302
  28. PANTOPRAZOLE SODIUM [Concomitant]
     Active Substance: PANTOPRAZOLE SODIUM
     Dosage: 20,MG,TWICE DAILY
     Route: 048
     Dates: start: 20230717
  29. FASTURTEC [Concomitant]
     Active Substance: RASBURICASE
     Dosage: 7.5,MG,DAILY
     Route: 042
     Dates: start: 20230724, end: 20230727
  30. FILGRASTIM [Concomitant]
     Active Substance: FILGRASTIM
     Dosage: 30,OTHER,DAILY
     Route: 058
     Dates: start: 20230727, end: 20230731
  31. FILGRASTIM [Concomitant]
     Active Substance: FILGRASTIM
     Dosage: 30X10E6,IU,ONCE
     Route: 058
     Dates: start: 20230925, end: 20230925
  32. LAMIVUDINE [Concomitant]
     Active Substance: LAMIVUDINE
     Dosage: 100,MG,DAILY
     Route: 048
     Dates: start: 202302
  33. KCL RETARD SLOW K [Concomitant]
     Dosage: 2,OTHER,THREE TIMES DAILY
     Route: 048
     Dates: start: 20230717
  34. FLUIMUCIL [Concomitant]
     Active Substance: ACETYLCYSTEINE
     Dosage: 600,MG,DAILY
     Route: 048
     Dates: start: 20230719, end: 20230727
  35. FLUIMUCIL [Concomitant]
     Active Substance: ACETYLCYSTEINE
     Dosage: 600,MG,THREE TIMES DAILY
     Route: 048
     Dates: start: 2023, end: 20230719
  36. MYCOSTATIN [Concomitant]
     Active Substance: NYSTATIN
     Dosage: 24,ML,DAILY
     Route: 048
     Dates: start: 20230719
  37. ENOXAPARIN [Concomitant]
     Active Substance: ENOXAPARIN
     Dosage: 0.4,ML,DAILY
     Route: 030
     Dates: start: 20230721, end: 20230728
  38. VALVERDE [FICUS CARICA FRUIT;SENNA ALEXANDRINA FRUIT;SENNOSIDE B] [Concomitant]
     Dosage: 200,ML,AS NECESSARY
     Route: 048
     Dates: start: 20230721
  39. POSACONAZOLE [Concomitant]
     Active Substance: POSACONAZOLE
     Dosage: 300,MG,DAILY
     Route: 048
     Dates: start: 20230722
  40. SODIUM CHLORIDE [Concomitant]
     Active Substance: SODIUM CHLORIDE
     Dosage: 500,ML,DAILY  0.9% BOLUS
     Route: 042
     Dates: start: 20230726, end: 20230727
  41. SODIUM CHLORIDE [Concomitant]
     Active Substance: SODIUM CHLORIDE
     Dosage: 2000 ML, CONTINOUS
     Route: 042
     Dates: start: 20230918, end: 20230926
  42. ACETAMINOPHEN\CAFFEINE\PROPYPHENAZONE [Concomitant]
     Active Substance: ACETAMINOPHEN\CAFFEINE\PROPYPHENAZONE
     Dosage: 1,G,AS NECESSARY
     Route: 048
     Dates: start: 20230726
  43. DEXAMETHASONE [Concomitant]
     Active Substance: DEXAMETHASONE
     Dosage: 10,MG,OTHER
     Route: 042
     Dates: start: 20230727, end: 20230731
  44. DEXAMETHASONE [Concomitant]
     Active Substance: DEXAMETHASONE
     Dosage: 20,MG,OTHER
     Route: 042
     Dates: start: 20230731, end: 20230803
  45. DEXAMETHASONE [Concomitant]
     Active Substance: DEXAMETHASONE
     Dosage: 10,MG,OTHER
     Route: 042
     Dates: start: 20230803, end: 20230804
  46. MAGNESIO [MAGNESIUM OXIDE] [Concomitant]
     Dosage: 2,OTHER,DAILY
     Route: 048
     Dates: start: 20230727
  47. MAGALDRATE [Concomitant]
     Active Substance: MAGALDRATE
     Dosage: 800,MG,DAILY
     Route: 042
     Dates: start: 20230727
  48. KALIUMPHOSPHAT B. BRAUN [Concomitant]
     Dosage: 40,OTHER,AS NECESSARY
     Route: 042
     Dates: start: 20230728
  49. TRAMADOL [Concomitant]
     Active Substance: TRAMADOL\TRAMADOL HYDROCHLORIDE
     Dosage: 100,OTHER,AS NECESSARY
     Route: 048
     Dates: start: 20230729
  50. PHOSCAP [Concomitant]
     Dosage: 6,OTHER,DAILY
     Route: 048
     Dates: start: 20230720
  51. PHOSCAP [Concomitant]
     Dosage: 6,OTHER,TWICE DAILY
     Route: 048
     Dates: start: 20230717, end: 20230719
  52. GANCICLOVIR [Concomitant]
     Active Substance: GANCICLOVIR
     Dosage: 350,MG,OTHER
     Route: 042
     Dates: start: 20230731
  53. IMMUNE GLOBULIN NOS [Concomitant]
     Active Substance: IMMUNE GLOBULIN NOS
     Dosage: 20,G,AS NECESSARY
     Route: 042
     Dates: start: 20230824
  54. LEVOFLOXACIN [Concomitant]
     Active Substance: LEVOFLOXACIN
     Dosage: 500,MG,DAILY
     Route: 048
     Dates: start: 20230828

REACTIONS (5)
  - Thrombocytopenia [Recovered/Resolved]
  - Encephalopathy [Recovered/Resolved]
  - Neutropenia [Recovered/Resolved]
  - Pseudomonal sepsis [Recovered/Resolved]
  - Disease progression [Not Recovered/Not Resolved]

NARRATIVE: CASE EVENT DATE: 20230730
